FAERS Safety Report 7154173-0 (Version None)
Quarter: 2010Q4

REPORT INFORMATION
  Report Type: 
  Country: None (occurrence: None)
  Receive Date: 20101213
  Receipt Date: 20101129
  Transmission Date: 20110411
  Serious: Yes (Hospitalization)
  Sender: FDA-Public Use
  Company Number: NL-MEDIMMUNE-MEDI-0011907

PATIENT
  Sex: Male
  Weight: 9.78 kg

DRUGS (4)
  1. SYNAGIS [Suspect]
     Route: 030
     Dates: start: 20101004, end: 20101103
  2. SYNAGIS [Suspect]
     Route: 030
     Dates: start: 20101103, end: 20101129
  3. FUROSEMIDE [Concomitant]
  4. ACENOCOUMAROL [Concomitant]

REACTIONS (2)
  - INFANTILE SPITTING UP [None]
  - PYREXIA [None]
